FAERS Safety Report 8269810-7 (Version None)
Quarter: 2012Q2

REPORT INFORMATION
  Report Type: 
  Country: None (occurrence: None)
  Receive Date: 20120410
  Receipt Date: 20120405
  Transmission Date: 20120825
  Serious: Yes (Other)
  Sender: FDA-Public Use
  Company Number: US-NAPPMUNDI-USA-2012-0084975

PATIENT
  Sex: Male

DRUGS (2)
  1. OXYCONTIN [Suspect]
     Indication: ARTHRALGIA
     Dosage: 160 MG, TID
     Dates: start: 20081001
  2. OXYCONTIN [Suspect]
     Indication: BACK PAIN

REACTIONS (3)
  - POST PROCEDURAL INFECTION [None]
  - SURGERY [None]
  - KNEE OPERATION [None]
